FAERS Safety Report 7299836-1 (Version None)
Quarter: 2011Q1

REPORT INFORMATION
  Report Type: 
  Country: None (occurrence: None)
  Receive Date: 20110217
  Receipt Date: 20110208
  Transmission Date: 20110831
  Serious: Yes (Hospitalization)
  Sender: FDA-Public Use
  Company Number: US-ASTRAZENECA-2011SE07547

PATIENT
  Age: 55 Year
  Sex: Female

DRUGS (1)
  1. NEXIUM [Suspect]
     Route: 048

REACTIONS (10)
  - BREAST OPERATION [None]
  - MENOPAUSE [None]
  - EYE OPERATION [None]
  - THYROID DISORDER [None]
  - ROAD TRAFFIC ACCIDENT [None]
  - CARDIAC DISORDER [None]
  - HYSTERECTOMY [None]
  - NECK EXPLORATION [None]
  - GLAUCOMA [None]
  - BLOOD CHOLESTEROL INCREASED [None]
